FAERS Safety Report 5381231-3 (Version None)
Quarter: 2007Q3

REPORT INFORMATION
  Report Type: 
  Country: None (occurrence: None)
  Receive Date: 20070706
  Receipt Date: 20070625
  Transmission Date: 20080115
  Serious: Yes (Other)
  Sender: FDA-Public Use
  Company Number: FR-PFIZER INC-2007053794

PATIENT
  Age: 37 Year
  Sex: Male

DRUGS (2)
  1. CHAMPIX [Suspect]
  2. MOBIC [Concomitant]

REACTIONS (3)
  - PRURITUS [None]
  - RASH PAPULAR [None]
  - SUPERINFECTION [None]
